FAERS Safety Report 14812553 (Version 1)
Quarter: 2018Q2

REPORT INFORMATION
  Report Type: Report from Study
  Country: GB (occurrence: GB)
  Receive Date: 20180425
  Receipt Date: 20180425
  Transmission Date: 20180711
  Serious: Yes (Hospitalization)
  Sender: FDA-Public Use
  Company Number: PHHO2014GB009719

PATIENT
  Sex: Male

DRUGS (4)
  1. DEXAMETHASONE. [Suspect]
     Active Substance: DEXAMETHASONE
     Indication: PLASMA CELL MYELOMA
     Dosage: 20 MG, (DAY 1, 2, 8 AND 9)
     Route: 048
     Dates: start: 20140514, end: 20140605
  2. LBH589 [Suspect]
     Active Substance: PANOBINOSTAT
     Indication: PLASMA CELL MYELOMA
     Dosage: 20 MG,(DAYS 1, 3, 5, 10 AND 12)
     Route: 048
     Dates: start: 20140514, end: 20140608
  3. THALIDOMIDE [Suspect]
     Active Substance: THALIDOMIDE
     Indication: PLASMA CELL MYELOMA
     Dosage: 100 MG, (DAYS 1-21)
     Route: 048
     Dates: start: 20140514, end: 20140608
  4. BORTEZOMIB [Suspect]
     Active Substance: BORTEZOMIB
     Indication: PLASMA CELL MYELOMA
     Dosage: 2.5 MG,(DAYS 1+8)
     Route: 058
     Dates: start: 20140514, end: 20140604

REACTIONS (2)
  - Loss of consciousness [Recovered/Resolved]
  - Cervical vertebral fracture [Not Recovered/Not Resolved]

NARRATIVE: CASE EVENT DATE: 20140609
